FAERS Safety Report 17091748 (Version 1)
Quarter: 2019Q4

REPORT INFORMATION
  Report Type: Spontaneous
  Country: NL (occurrence: NL)
  Receive Date: 20191129
  Receipt Date: 20191129
  Transmission Date: 20200122
  Serious: Yes (Hospitalization)
  Sender: FDA-Public Use
  Company Number: NL-TEVA-2019-NL-1143524

PATIENT
  Age: 69 Year
  Sex: Female
  Weight: 59 kg

DRUGS (12)
  1. OXYCODON [Concomitant]
     Active Substance: OXYCODONE
     Dosage: ZN 6DD5MG
  2. FENTANYL PLEISTER 25UG/UUR [Concomitant]
     Dosage: 1X PER 3 DAYS 1 BROKEN
  3. TEMAZEPAM. [Concomitant]
     Active Substance: TEMAZEPAM
     Dosage: 1DD10MG
  4. PANTOPRAZOL [Concomitant]
     Active Substance: PANTOPRAZOLE SODIUM
     Dosage: 1DD40MG
  5. METOCLOPRAMIDE. [Concomitant]
     Active Substance: METOCLOPRAMIDE
     Dosage: METOCLOPRAMIDE ZN 2DD5MG
  6. BORTEZOMIB INJVLST 2,5MG/ML FL 1,4ML 1 X PER DAG 2,2 MILLIGRAM TOEDIEN [Concomitant]
     Dosage: 1 X PER DAG 2,2 MILLIGRAM ADMINISTRATION 1 ML PER 10 SECONDS
  7. TIMOLOL/LATANOPROST OOGDRUPPELS 5MG/50UG [Concomitant]
     Dosage: 1DD1DRUPPEL IN BEIDE OGEN
  8. MACROGOL/ZOUTEN [Concomitant]
     Dosage: 1DD1ST
  9. HALOPERIDOLL [Concomitant]
     Dosage: 2DD1MG, IF NECESSARY 1MG EXTRA
  10. ATENOLOL. [Concomitant]
     Active Substance: ATENOLOL
     Dosage: 1 DD 25 MG
  11. PARACETAMOL [Concomitant]
     Active Substance: ACETAMINOPHEN
     Dosage: 4DD1000MG
  12. DEXAMETHASON TABLET 20 MG [Suspect]
     Active Substance: DEXAMETHASONE
     Indication: PLASMA CELL MYELOMA
     Dosage: 1X 1 PIECE BY DAY 4 EN 5 EN OP DAY 8 EN 9
     Dates: start: 20190920, end: 20191002

REACTIONS (1)
  - Delusion [Recovering/Resolving]

NARRATIVE: CASE EVENT DATE: 20190920
